FAERS Safety Report 21047115 (Version 1)
Quarter: 2022Q3

REPORT INFORMATION
  Report Type: Spontaneous
  Country: US (occurrence: US)
  Receive Date: 20220706
  Receipt Date: 20220706
  Transmission Date: 20221027
  Serious: Yes (Other)
  Sender: FDA-Public Use
  Company Number: US-BRISTOL-MYERS SQUIBB COMPANY-2022-060973

PATIENT
  Age: 87 Year
  Sex: Female

DRUGS (12)
  1. POMALIDOMIDE [Suspect]
     Active Substance: POMALIDOMIDE
     Indication: Plasma cell myeloma
     Dosage: DAILY
     Route: 048
     Dates: start: 20150822, end: 20150912
  2. REVLIMID [Suspect]
     Active Substance: LENALIDOMIDE
     Indication: Plasma cell myeloma
     Dosage: 21 DAYS ON 7 DAYS OFF
     Route: 048
     Dates: start: 20110709, end: 20120329
  3. VELCADE [Concomitant]
     Active Substance: BORTEZOMIB
     Dosage: FREQUENCY: 1X WEEKLY, NO REST PERIOD: DAY 1 Q 7D
     Route: 058
     Dates: start: 20110701, end: 20120329
  4. DECADRON [Concomitant]
     Active Substance: DEXAMETHASONE
     Dosage: WEEKLY
     Route: 048
  5. DECADRON [Concomitant]
     Active Substance: DEXAMETHASONE
     Dosage: DAY 1, 2, 8, 9, 15, 16 EVERY 28 DAYS
     Route: 048
     Dates: start: 20150924, end: 20151121
  6. DECADRON [Concomitant]
     Active Substance: DEXAMETHASONE
     Dosage: DAY 1, 8, 15 EVERY 28 DAYS
     Route: 048
     Dates: start: 20160107, end: 20160115
  7. DECADRON [Concomitant]
     Active Substance: DEXAMETHASONE
     Dosage: DAYS OF DARATUMUMAB
     Route: 042
     Dates: start: 20160212, end: 20160219
  8. DECADRON [Concomitant]
     Active Substance: DEXAMETHASONE
     Route: 042
     Dates: start: 20160225
  9. DECADRON [Concomitant]
     Active Substance: DEXAMETHASONE
     Dosage: DAY 2 AND 3 AFTER CHEMOTHERAPY
     Dates: start: 20160225
  10. CARFILZOMIB [Concomitant]
     Active Substance: CARFILZOMIB
     Dosage: DAY 1, 2, 8, 9, 15, 16 EVERY 28 DAYS
     Route: 042
     Dates: start: 20150924, end: 20151121
  11. CARFILZOMIB [Concomitant]
     Active Substance: CARFILZOMIB
     Dosage: DAY 1, 8, 15 EVERY 28 DAYS
     Route: 042
     Dates: start: 20160107, end: 20160115
  12. DARZALEX [Concomitant]
     Active Substance: DARATUMUMAB
     Route: 042
     Dates: start: 20160407

REACTIONS (1)
  - Toxicity to various agents [Unknown]
